FAERS Safety Report 6524343-0 (Version None)
Quarter: 2009Q4

REPORT INFORMATION
  Report Type: 
  Country: None (occurrence: None)
  Receive Date: 20091231
  Receipt Date: 20091216
  Transmission Date: 20100525
  Serious: Yes (Other)
  Sender: FDA-Public Use
  Company Number: GB-WATSON-2009-11189

PATIENT
  Age: 60 Year
  Sex: Female

DRUGS (2)
  1. RAMIPRIL (WATSON LABORATORIES) [Suspect]
     Indication: HYPOTENSION
     Dosage: UNK
     Route: 048
  2. ANALGESICS [Concomitant]
     Indication: DRUG USE FOR UNKNOWN INDICATION
     Dosage: ^SIMPLE ANALGESICS^
     Route: 065

REACTIONS (6)
  - HOT FLUSH [None]
  - HYPOTENSION [None]
  - LOSS OF CONSCIOUSNESS [None]
  - ROAD TRAFFIC ACCIDENT [None]
  - SYNCOPE [None]
  - VASODILATATION [None]
